FAERS Safety Report 23913134 (Version 1)
Quarter: 2024Q2

REPORT INFORMATION
  Report Type: Spontaneous
  Country: PL (occurrence: None)
  Receive Date: 20240529
  Receipt Date: 20240529
  Transmission Date: 20240716
  Serious: Yes (Other)
  Sender: FDA-Public Use
  Company Number: 2024A118390

PATIENT
  Age: 46 Year
  Sex: Female

DRUGS (3)
  1. FULVESTRANT [Suspect]
     Active Substance: FULVESTRANT
     Indication: Breast cancer
     Dosage: 500 MG (ON DAYS 1, 15 AND 29, AND THEN EVERY 28 DAYS)
     Route: 030
     Dates: start: 20230830
  2. RIBOCICLIB [Suspect]
     Active Substance: RIBOCICLIB
     Indication: Breast cancer
     Dosage: 600 MG (FOR 21 DAYS THEN A 7-DAY BREAK (28-DAY CYCLES))
     Route: 048
     Dates: start: 20230830
  3. ZOLEDRONIC ACID [Concomitant]
     Active Substance: ZOLEDRONIC ACID
     Indication: Product used for unknown indication
     Route: 042
     Dates: start: 202401

REACTIONS (3)
  - Neutropenia [Unknown]
  - Metastases to liver [Unknown]
  - Laboratory test abnormal [Unknown]

NARRATIVE: CASE EVENT DATE: 20230828
